FAERS Safety Report 23715147 (Version 2)
Quarter: 2024Q2

REPORT INFORMATION
  Report Type: Spontaneous
  Country: US (occurrence: US)
  Receive Date: 20240407
  Receipt Date: 20240423
  Transmission Date: 20240716
  Serious: No
  Sender: FDA-Public Use
  Company Number: US-HALEON-2165976

PATIENT

DRUGS (1)
  1. SENSODYNE REPAIR AND PROTECT WHITENING [Suspect]
     Active Substance: STANNOUS FLUORIDE
     Indication: Product used for unknown indication
     Route: 065

REACTIONS (5)
  - Glossodynia [Unknown]
  - Oral discomfort [Unknown]
  - Gingival pain [Unknown]
  - Lip swelling [Unknown]
  - Hypersensitivity [Unknown]
